FAERS Safety Report 11678384 (Version 1)
Quarter: 2015Q4

REPORT INFORMATION
  Report Type: Spontaneous
  Country: FR (occurrence: FR)
  Receive Date: 20151028
  Receipt Date: 20151028
  Transmission Date: 20160304
  Serious: Yes (Life-Threatening, Hospitalization, Other)
  Sender: FDA-Public Use
  Company Number: FR-ELI_LILLY_AND_COMPANY-FR201510007048

PATIENT
  Age: 55 Year
  Sex: Male

DRUGS (5)
  1. TAHOR [Concomitant]
     Active Substance: ATORVASTATIN CALCIUM
     Indication: CARDIAC DISORDER
     Dosage: UNK, UNKNOWN
  2. CARBOPLATIN. [Suspect]
     Active Substance: CARBOPLATIN
     Indication: LUNG ADENOCARCINOMA METASTATIC
     Dosage: UNK UNK, UNKNOWN
     Route: 042
     Dates: start: 20150611
  3. BISOCE [Concomitant]
     Active Substance: BISOPROLOL
     Indication: CARDIAC DISORDER
     Dosage: UNK, UNKNOWN
  4. ALIMTA [Suspect]
     Active Substance: PEMETREXED DISODIUM
     Indication: LUNG ADENOCARCINOMA METASTATIC
     Dosage: UNK, CYCLICAL
     Route: 042
     Dates: start: 20150611
  5. INNOHEP [Concomitant]
     Active Substance: TINZAPARIN SODIUM
     Indication: CARDIAC DISORDER
     Dosage: UNK, UNKNOWN

REACTIONS (11)
  - Leukocytosis [Unknown]
  - Anaemia [Recovering/Resolving]
  - Dehydration [Unknown]
  - Angina pectoris [Unknown]
  - Diarrhoea infectious [Recovering/Resolving]
  - Off label use [Unknown]
  - Thrombocytopenia [Recovering/Resolving]
  - Central nervous system lesion [Unknown]
  - Neutropenia [Unknown]
  - Monoplegia [Unknown]
  - Hypotension [Unknown]

NARRATIVE: CASE EVENT DATE: 20150622
